FAERS Safety Report 7960543-0 (Version None)
Quarter: 2011Q4

REPORT INFORMATION
  Report Type: 
  Country: None (occurrence: None)
  Receive Date: 20111206
  Receipt Date: 20111124
  Transmission Date: 20120403
  Serious: Yes (Other)
  Sender: FDA-Public Use
  Company Number: PHHY2011JP103656

PATIENT
  Age: 42 Year
  Sex: Female
  Weight: 63 kg

DRUGS (7)
  1. VALSARTAN [Suspect]
     Indication: HYPERTENSION
     Dosage: 2.5 MG
     Route: 048
  2. LOXOPROFEN [Concomitant]
     Indication: PAIN
     Dosage: 180 MG
  3. CYCLOPHOSPHAMIDE [Concomitant]
     Indication: BREAST CANCER
     Dosage: 600 MG/M2
  4. OXYCODONE HCL [Concomitant]
     Indication: PAIN
     Dosage: 10 MG
  5. EPIRUBICIN HYDROCHLORIDE [Concomitant]
     Indication: BREAST CANCER
     Dosage: 100 MG/M2
  6. DICLOFENAC SODIUM [Suspect]
     Dosage: 50 MG
     Route: 054
  7. FUROSEMIDE [Concomitant]
     Indication: HYPERTENSION
     Dosage: UNK

REACTIONS (1)
  - SCLERODERMA RENAL CRISIS [None]
